FAERS Safety Report 8924566 (Version 5)
Quarter: 2013Q1

REPORT INFORMATION
  Report Type: Spontaneous
  Country: US (occurrence: None)
  Receive Date: 20121116
  Receipt Date: 20130228
  Transmission Date: 20140127
  Serious: Yes (Other)
  Sender: FDA-Public Use
  Company Number: AUR-APL-2012-04858

PATIENT
  Sex: Female

DRUGS (1)
  1. VALACYCLOVIR [Suspect]
     Indication: PRODUCT USED FOR UNKNOWN INDICATION

REACTIONS (9)
  - Palpitations [None]
  - Feeling abnormal [None]
  - Anxiety [None]
  - Crying [None]
  - Dyspnoea [None]
  - Suicidal ideation [None]
  - Drug effect increased [None]
  - Headache [None]
  - Sleep disorder [None]
